FAERS Safety Report 12008887 (Version 2)
Quarter: 2016Q1

REPORT INFORMATION
  Report Type: Spontaneous
  Country: US (occurrence: US)
  Receive Date: 20160205
  Receipt Date: 20160311
  Transmission Date: 20160526
  Serious: Yes (Death)
  Sender: FDA-Public Use
  Company Number: US-ROCHE-1705005

PATIENT
  Age: 68 Year
  Sex: Female

DRUGS (1)
  1. ESBRIET [Suspect]
     Active Substance: PIRFENIDONE
     Indication: IDIOPATHIC PULMONARY FIBROSIS
     Route: 048
     Dates: start: 20150313, end: 20160127

REACTIONS (3)
  - Non-small cell lung cancer [Fatal]
  - Chronic obstructive pulmonary disease [Fatal]
  - Emphysema [Fatal]

NARRATIVE: CASE EVENT DATE: 20160127
